FAERS Safety Report 7608373-3 (Version None)
Quarter: 2011Q3

REPORT INFORMATION
  Report Type: 
  Country: None (occurrence: None)
  Receive Date: 20110714
  Receipt Date: 20110516
  Transmission Date: 20111222
  Serious: No
  Sender: FDA-Public Use
  Company Number: US-TYCO HEALTHCARE/MALLINCKRODT-T201100982

PATIENT
  Sex: Male

DRUGS (16)
  1. AMBIEN [Concomitant]
     Dosage: 10 MG, QD, AT BEDTIME
  2. VERPAMIL HCL [Concomitant]
     Dosage: 240 MG, QD
  3. NITRO                              /00003201/ [Concomitant]
     Dosage: UNK, PRN
  4. CHLORDIAZEPOXIDE [Concomitant]
     Dosage: 50 MG, QD, AT BEDTIME
  5. TRAZODONE HCL [Concomitant]
     Dosage: 150 MG TABS, 1.5 TABS QD
  6. BUSPIRONE HCL [Concomitant]
     Dosage: 15 MG, BID
  7. CLONIDINE [Concomitant]
     Dosage: 0.1 MG, BID
  8. LOVASTATIN [Concomitant]
     Dosage: 40 MG, QD, AT BEDTIME
  9. VITAMINS NOS [Concomitant]
     Dosage: UNK
  10. FLUOXETINE [Concomitant]
     Dosage: 20 MG, QD
  11. MORPHINE [Suspect]
     Indication: BACK PAIN
     Dosage: 60 MG, QID
     Route: 048
     Dates: start: 20080101
  12. MORPHINE [Suspect]
     Indication: NECK PAIN
  13. MORPHINE [Suspect]
     Indication: ARTHRITIS
  14. HYDROCHLOROTHIAZIDE [Concomitant]
     Dosage: 25 MG, QD
  15. OMEPRAZOLE [Concomitant]
     Indication: GASTROOESOPHAGEAL REFLUX DISEASE
     Dosage: 1-2 TABS QD
  16. ASPIRIN [Concomitant]
     Dosage: 81 MG, UNK

REACTIONS (4)
  - ABDOMINAL DISTENSION [None]
  - NAUSEA [None]
  - ABDOMINAL PAIN UPPER [None]
  - CONSTIPATION [None]
